FAERS Safety Report 5366712-0 (Version None)
Quarter: 2007Q2

REPORT INFORMATION
  Report Type: 
  Country: None (occurrence: None)
  Receive Date: 20070622
  Receipt Date: 20060609
  Transmission Date: 20071010
  Serious: No
  Sender: FDA-Public Use
  Company Number: US-ASTRAZENECA-2006UW12424

PATIENT
  Sex: Female

DRUGS (10)
  1. RHINOCORT [Suspect]
     Route: 045
  2. ADVAIR DISKUS 100/50 [Concomitant]
  3. MAXAIR [Concomitant]
  4. AVAPRO [Concomitant]
  5. ZETIA [Concomitant]
  6. CLARITIN [Concomitant]
  7. CELEBREX [Concomitant]
  8. SINGULAIR [Concomitant]
  9. APAP TAB [Concomitant]
  10. ACTONEL [Concomitant]

REACTIONS (1)
  - CANDIDIASIS [None]
